FAERS Safety Report 9988250 (Version 1)
Quarter: 2014Q1

REPORT INFORMATION
  Report Type: Spontaneous
  Country: IT (occurrence: IT)
  Receive Date: 20140310
  Receipt Date: 20140310
  Transmission Date: 20141002
  Serious: Yes (Other)
  Sender: FDA-Public Use
  Company Number: IT-MYLANLABS-2014S1004201

PATIENT
  Age: 25 Year
  Sex: Male

DRUGS (2)
  1. OMEPRAZOLE [Suspect]
     Indication: GASTROENTERITIS
     Dosage: 40 MG TOTAL
     Route: 041
     Dates: start: 20140216, end: 20140216
  2. METOCLOPRAMIDE HYDROCHLORIDE [Suspect]
     Indication: GASTROENTERITIS
     Dosage: 1 DF TOTAL
     Route: 041
     Dates: start: 20140216, end: 20140216

REACTIONS (2)
  - Erythema [Recovering/Resolving]
  - Pruritus [Recovering/Resolving]
